FAERS Safety Report 10068742 (Version 2)
Quarter: 2014Q2

REPORT INFORMATION
  Report Type: Spontaneous
  Country: FR (occurrence: FR)
  Receive Date: 20140409
  Receipt Date: 20140409
  Transmission Date: 20141212
  Serious: Yes (Hospitalization)
  Sender: FDA-Public Use
  Company Number: FR-BAYER-2014-024717

PATIENT
  Age: 56 Year
  Sex: Male

DRUGS (3)
  1. NEXAVAR [Suspect]
     Indication: HEPATOCELLULAR CARCINOMA
     Dosage: 400 MG, BID
     Route: 048
     Dates: start: 20140115, end: 20140131
  2. NEXAVAR [Suspect]
     Indication: HEPATOCELLULAR CARCINOMA
     Dosage: UNK
     Route: 048
  3. INEXIUM [Concomitant]

REACTIONS (7)
  - Blister [Recovered/Resolved]
  - Stasis dermatitis [Recovered/Resolved]
  - Dermatitis psoriasiform [Recovering/Resolving]
  - Rash erythematous [Recovering/Resolving]
  - Exfoliative rash [Recovering/Resolving]
  - Rash generalised [Recovering/Resolving]
  - Rash pustular [Recovered/Resolved]
